FAERS Safety Report 8262642-5 (Version None)
Quarter: 2012Q2

REPORT INFORMATION
  Report Type: 
  Country: None (occurrence: None)
  Receive Date: 20120405
  Receipt Date: 20120329
  Transmission Date: 20120825
  Serious: Yes (Life-Threatening, Hospitalization, Other)
  Sender: FDA-Public Use
  Company Number: CA-BAYER-2012-031413

PATIENT
  Age: 61 Year
  Sex: Female

DRUGS (4)
  1. OLMESARTAN MEDOXOMIL AND HYDROCHLOROTHIZIDE [Suspect]
  2. FUROSEMIDE [Suspect]
  3. MOXIFLOXACIN [Suspect]
  4. AMIODARONE HCL [Suspect]

REACTIONS (3)
  - LONG QT SYNDROME [None]
  - HYPOKALAEMIA [None]
  - TORSADE DE POINTES [None]
